FAERS Safety Report 14835556 (Version 1)
Quarter: 2018Q2

REPORT INFORMATION
  Report Type: Spontaneous
  Country: GB (occurrence: GB)
  Receive Date: 20180502
  Receipt Date: 20180502
  Transmission Date: 20180711
  Serious: Yes (Other)
  Sender: FDA-Public Use
  Company Number: GB-TEVA-2018-GB-888291

PATIENT
  Age: 7 Year
  Sex: Male
  Weight: 13 kg

DRUGS (4)
  1. MOVICOL [Concomitant]
     Active Substance: POLYETHYLENE GLYCOL 3350\POTASSIUM CHLORIDE\SODIUM BICARBONATE\SODIUM CHLORIDE
     Dosage: 1 DOSAGE FORMS DAILY;
     Dates: start: 20121025
  2. SALBUTAMOL [Concomitant]
     Active Substance: ALBUTEROL
     Route: 055
     Dates: start: 20171218, end: 20171219
  3. AMOXICILLIN. [Suspect]
     Active Substance: AMOXICILLIN
     Dates: start: 20180301
  4. AQUEOUS CREAM [Concomitant]
     Dosage: APPLY
     Dates: start: 20161213

REACTIONS (4)
  - Hypersensitivity [Recovered/Resolved]
  - Rash erythematous [Unknown]
  - Pruritus generalised [Unknown]
  - Wheezing [Unknown]

NARRATIVE: CASE EVENT DATE: 20180301
